FAERS Safety Report 17130116 (Version 2)
Quarter: 2020Q4

REPORT INFORMATION
  Report Type: Spontaneous
  Country: US (occurrence: US)
  Receive Date: 20191209
  Receipt Date: 20201222
  Transmission Date: 20210113
  Serious: Yes (Other)
  Sender: FDA-Public Use
  Company Number: US-PFIZER INC-2019529189

PATIENT
  Age: 89 Year
  Sex: Female

DRUGS (2)
  1. LYRICA [Suspect]
     Active Substance: PREGABALIN
     Dosage: 250 MG, DAILY (100MG IN THE AM 50MG AT NOON AND 100MG AT BEDTIME FOR 1 WEEK)
  2. LYRICA [Suspect]
     Active Substance: PREGABALIN
     Dosage: 200 MG, DAILY (50MG AM AND 50MG AT NOON CONTINUE 100MG AT BEDTIME)

REACTIONS (2)
  - Confusional state [Unknown]
  - Dementia [Unknown]
